FAERS Safety Report 24908020 (Version 2)
Quarter: 2025Q1

REPORT INFORMATION
  Report Type: Spontaneous
  Country: US (occurrence: US)
  Receive Date: 20250131
  Receipt Date: 20250306
  Transmission Date: 20250409
  Serious: No
  Sender: EMCURE PHARMACEUTICALS LTD
  Company Number: US-AVET LIFESCIENCES LTD-2025-AVET-000014

PATIENT

DRUGS (9)
  1. BUMETANIDE [Suspect]
     Active Substance: BUMETANIDE
     Indication: Peripheral swelling
     Route: 048
  2. ADDERALL [Concomitant]
     Active Substance: AMPHETAMINE ASPARTATE\AMPHETAMINE SULFATE\DEXTROAMPHETAMINE SACCHARATE\DEXTROAMPHETAMINE SULFATE
  3. DESLORATADINE [Concomitant]
     Active Substance: DESLORATADINE
  4. FARXIGA [Concomitant]
     Active Substance: DAPAGLIFLOZIN PROPANEDIOL
  5. TRULICITY [Concomitant]
     Active Substance: DULAGLUTIDE
  6. ELIQUIS [Concomitant]
     Active Substance: APIXABAN
  7. NOVOLOG [Concomitant]
     Active Substance: INSULIN ASPART
  8. LANTUS [Concomitant]
     Active Substance: INSULIN GLARGINE
  9. POTASSIUM [Concomitant]
     Active Substance: POTASSIUM

REACTIONS (2)
  - Oliguria [Recovered/Resolved]
  - Drug ineffective [Unknown]
